FAERS Safety Report 8832445 (Version 1)
Quarter: 2012Q4

REPORT INFORMATION
  Report Type: Spontaneous
  Country: ES (occurrence: None)
  Receive Date: 20121005
  Receipt Date: 20121005
  Transmission Date: 20130627
  Serious: Yes (Hospitalization, Other)
  Sender: FDA-Public Use
  Company Number: AUR-APL-2012-04236

PATIENT
  Age: 44 Year
  Sex: Male

DRUGS (6)
  1. CARVEDILOL [Suspect]
     Indication: HYPERTENSION
     Dosage: 13 mg (6.5 mg, 2 in 1 d), Oral
     Route: 048
     Dates: start: 20120115
  2. CARDURAN NEO [Suspect]
     Indication: HYPERTENSION
     Dosage: 4mg (4 mg, 1 in 1 D), Oral
     Route: 048
     Dates: start: 20120115
  3. ENALAPRIL [Suspect]
     Indication: HYPERTENSION
     Route: 048
     Dates: start: 20120116
  4. ADVAGRAF [Suspect]
     Indication: RENAL TRANSPLANT
     Route: 048
     Dates: start: 20120110, end: 20120121
  5. KARVEA [Suspect]
     Indication: HYPERTENSION
  6. SEPTRIN FORTE [Suspect]
     Indication: PROPHYLAXIS
     Dosage: 0.4286 Dosage forms (1 Dosage forms, 3 in 1 wk) Oral
     Route: 048
     Dates: start: 20120116, end: 20120121

REACTIONS (5)
  - Hyperkalaemia [None]
  - Hypomagnesaemia [None]
  - Asthenia [None]
  - Paraesthesia [None]
  - Drug interaction [None]
